FAERS Safety Report 6710289-1 (Version None)
Quarter: 2010Q2

REPORT INFORMATION
  Report Type: 
  Country: None (occurrence: None)
  Receive Date: 20100504
  Receipt Date: 20090706
  Transmission Date: 20101027
  Serious: Yes (Other)
  Sender: FDA-Public Use
  Company Number: US-BAYER-200912282BCC

PATIENT
  Age: 32 Year
  Sex: Female
  Weight: 54 kg

DRUGS (1)
  1. ALKA-SELTZER MORNING RELIEF [Suspect]
     Indication: FEELING ABNORMAL
     Route: 048

REACTIONS (9)
  - CHILLS [None]
  - COORDINATION ABNORMAL [None]
  - DEHYDRATION [None]
  - DIZZINESS [None]
  - DYSPNOEA [None]
  - FEELING OF BODY TEMPERATURE CHANGE [None]
  - HEART RATE IRREGULAR [None]
  - SPEECH DISORDER [None]
  - TREMOR [None]
